FAERS Safety Report 6363091-7 (Version None)
Quarter: 2009Q3

REPORT INFORMATION
  Report Type: 
  Country: None (occurrence: None)
  Receive Date: 20090919
  Receipt Date: 20090615
  Transmission Date: 20100115
  Serious: No
  Sender: FDA-Public Use
  Company Number: US-ABBOTT-09P-163-0579957-00

PATIENT
  Sex: Female
  Weight: 63.56 kg

DRUGS (7)
  1. HUMIRA [Suspect]
     Indication: RHEUMATOID ARTHRITIS
     Route: 058
     Dates: start: 20040101
  2. METHOTREXATE [Concomitant]
     Indication: RHEUMATOID ARTHRITIS
  3. FOLIC ACID [Concomitant]
     Indication: RHEUMATOID ARTHRITIS
  4. VITAMIN D [Concomitant]
     Indication: RHEUMATOID ARTHRITIS
  5. ONE A DAY VITAMIN [Concomitant]
     Indication: DRUG USE FOR UNKNOWN INDICATION
  6. L-CARNITINE [Concomitant]
     Indication: DRUG USE FOR UNKNOWN INDICATION
  7. ALPHA LIPOIC ACID [Concomitant]
     Indication: DRUG USE FOR UNKNOWN INDICATION

REACTIONS (2)
  - DRUG DOSE OMISSION [None]
  - SEASONAL ALLERGY [None]
